FAERS Safety Report 8035520-4 (Version None)
Quarter: 2012Q1

REPORT INFORMATION
  Report Type: 
  Country: None (occurrence: None)
  Receive Date: 20120111
  Receipt Date: 20120106
  Transmission Date: 20120608
  Serious: Yes (Hospitalization)
  Sender: FDA-Public Use
  Company Number: JP-PAR PHARMACEUTICAL, INC-2011SCPR003557

PATIENT

DRUGS (9)
  1. DEXAMETHASONE TAB [Suspect]
     Indication: MULTIPLE MYELOMA
     Dosage: UNK, UNKNOWN
     Route: 065
  2. LENALIDOMIDE [Suspect]
     Indication: MULTIPLE MYELOMA
     Dosage: 25 MG ON DAYS 1-21
     Route: 065
  3. PREDNISOLONE [Suspect]
     Indication: MULTIPLE MYELOMA
     Dosage: UNK, UNKNOWN
     Route: 065
  4. THALIDOMIDE [Suspect]
     Indication: MULTIPLE MYELOMA
     Dosage: UNK, UNKNOWN
     Route: 065
  5. MELPHALAN HYDROCHLORIDE [Suspect]
     Indication: MULTIPLE MYELOMA
     Dosage: UNK, UNKNOWN
     Route: 065
  6. DEXAMETHASONE TAB [Suspect]
     Dosage: 40 MG, (DAY 1, 8, 15, 22), 4 WEEKLY
     Route: 065
  7. BORTEZOMIB [Suspect]
     Indication: MULTIPLE MYELOMA
     Dosage: UNK, UNKNOWN
     Route: 065
  8. VINCRISTINE [Suspect]
     Indication: MULTIPLE MYELOMA
     Dosage: UNK, UNKNOWN
     Route: 065
  9. DOXORUBICIN HCL [Suspect]
     Indication: MULTIPLE MYELOMA
     Dosage: UNK, UNKNOWN
     Route: 065

REACTIONS (3)
  - MULTIPLE-DRUG RESISTANCE [None]
  - PULMONARY ALVEOLAR HAEMORRHAGE [None]
  - RESPIRATORY FAILURE [None]
